FAERS Safety Report 6370884-9 (Version None)
Quarter: 2009Q3

REPORT INFORMATION
  Report Type: 
  Country: None (occurrence: None)
  Receive Date: 20090923
  Receipt Date: 20070516
  Transmission Date: 20100115
  Serious: No
  Sender: FDA-Public Use
  Company Number: US-ASTRAZENECA-2006UW22728

PATIENT
  Age: 340 Month
  Sex: Female
  Weight: 102.5 kg

DRUGS (41)
  1. SEROQUEL [Suspect]
     Indication: DEPRESSION
     Dosage: 25 - 200 MG
     Route: 048
     Dates: start: 19990324
  2. SEROQUEL [Suspect]
     Indication: STRESS
     Dosage: 25 - 200 MG
     Route: 048
     Dates: start: 19990324
  3. SEROQUEL [Suspect]
     Route: 048
     Dates: start: 19990401, end: 19990701
  4. SEROQUEL [Suspect]
     Route: 048
     Dates: start: 19990401, end: 19990701
  5. SEROQUEL [Suspect]
     Route: 048
     Dates: start: 20040701, end: 20041001
  6. SEROQUEL [Suspect]
     Route: 048
     Dates: start: 20040701, end: 20041001
  7. ABILIFY [Concomitant]
  8. GEODON [Concomitant]
     Dates: start: 20020812
  9. HALDOL [Concomitant]
  10. RISPERDAL [Concomitant]
  11. REMERON [Concomitant]
  12. PAXIL [Concomitant]
  13. TRAZODONE [Concomitant]
  14. DEPAKOTE [Concomitant]
  15. LEXAPRO [Concomitant]
  16. HALOPERIDOL [Concomitant]
  17. CYMBALTA [Concomitant]
  18. BENZATROPINE [Concomitant]
  19. METRONIDAZOLE [Concomitant]
  20. HYDROCHLOROTHIAZIDE [Concomitant]
  21. ALBUTEROL [Concomitant]
  22. TRICOR [Concomitant]
  23. LORAZEPAM [Concomitant]
  24. KETOPROFEN [Concomitant]
  25. HYDROCODONE [Concomitant]
  26. FLOVENT HFA [Concomitant]
  27. METFORMIN HCL [Concomitant]
  28. MEFLOQUINE HCL [Concomitant]
  29. POLYMYXIN [Concomitant]
  30. CLINDAMAX [Concomitant]
  31. LOVASTATIN [Concomitant]
  32. CEPHALEXIN [Concomitant]
  33. AMBIEN [Concomitant]
  34. AMITRIPTYLINE [Concomitant]
  35. MERIDIA [Concomitant]
  36. OXYCODONE [Concomitant]
  37. SKELAXIN [Concomitant]
  38. IBUPROFEN [Concomitant]
  39. METHYLPREDNISOLONE 4MG TAB [Concomitant]
  40. PERCOCET [Concomitant]
  41. GABAPENTIN [Concomitant]

REACTIONS (6)
  - AORTIC VALVE INCOMPETENCE [None]
  - BLOOD CHOLESTEROL INCREASED [None]
  - BLOOD TRIGLYCERIDES INCREASED [None]
  - DIABETES MELLITUS [None]
  - SCIATICA [None]
  - TYPE 2 DIABETES MELLITUS [None]
